FAERS Safety Report 23912449 (Version 1)
Quarter: 2024Q2

REPORT INFORMATION
  Report Type: Report from Study
  Country: US (occurrence: US)
  Receive Date: 20240528
  Receipt Date: 20240528
  Transmission Date: 20240716
  Serious: Yes (Other)
  Sender: FDA-Public Use
  Company Number: US-ABBVIE-5773326

PATIENT
  Sex: Male

DRUGS (2)
  1. RINVOQ [Suspect]
     Active Substance: UPADACITINIB
     Indication: Product used for unknown indication
     Dosage: EXTENDED RELEASE
     Route: 048
     Dates: start: 2021
  2. RINVOQ [Suspect]
     Active Substance: UPADACITINIB
     Indication: Product used for unknown indication
     Dosage: EXTENDED RELEASE
     Route: 048
     Dates: start: 202404

REACTIONS (6)
  - Appendicitis perforated [Unknown]
  - Pain in extremity [Unknown]
  - Spinal pain [Unknown]
  - Sciatica [Unknown]
  - Exercise lack of [Unknown]
  - Condition aggravated [Recovering/Resolving]

NARRATIVE: CASE EVENT DATE: 20240101
